FAERS Safety Report 6270754-0 (Version None)
Quarter: 2009Q3

REPORT INFORMATION
  Report Type: 
  Country: None (occurrence: None)
  Receive Date: 20090714
  Receipt Date: 20090630
  Transmission Date: 20100115
  Serious: Yes (Other)
  Sender: FDA-Public Use
  Company Number: 320107

PATIENT
  Age: 17 Year
  Sex: Female
  Weight: 40 kg

DRUGS (11)
  1. VANCOMYCIN [Suspect]
     Indication: ENTEROCOCCAL INFECTION
     Dosage: 1 G, 2 DAY, INTRAVENOUS; 750 MG (3 DAY) INTRAVENOUS
     Route: 042
     Dates: end: 20090415
  2. VANCOMYCIN [Suspect]
     Indication: ENTEROCOCCAL INFECTION
     Dosage: 1 G, 2 DAY, INTRAVENOUS; 750 MG (3 DAY) INTRAVENOUS
     Route: 042
     Dates: start: 20090331
  3. (MEROPENEM) [Suspect]
     Indication: ENTEROBACTER INFECTION
     Dosage: 500 MG, 3 DAY, INTRAVENOUS
     Route: 042
     Dates: start: 20090306, end: 20090415
  4. AMITRIPTYLINE HCL [Concomitant]
  5. ENOXAPARIN SODIUM [Concomitant]
  6. FOLIC ACID [Concomitant]
  7. LACTULOSE [Concomitant]
  8. OXYCODONE HCL [Concomitant]
  9. ACETAMINOPHEN [Concomitant]
  10. (SANDOCAL /00177201/) [Concomitant]
  11. SENNA-MINT WAF [Concomitant]

REACTIONS (1)
  - PANCYTOPENIA [None]
